FAERS Safety Report 11924590 (Version 1)
Quarter: 2016Q1

REPORT INFORMATION
  Report Type: Spontaneous
  Country: US (occurrence: US)
  Receive Date: 20160118
  Receipt Date: 20160118
  Transmission Date: 20160526
  Serious: Yes (Other)
  Sender: FDA-Public Use
  Company Number: US-GLAXOSMITHKLINE-US2016GSK005412

PATIENT
  Sex: Female

DRUGS (1)
  1. WELLBUTRIN SR [Suspect]
     Active Substance: BUPROPION HYDROCHLORIDE
     Indication: DEPRESSION
     Dosage: UNK
     Dates: start: 201006

REACTIONS (6)
  - Fatigue [Not Recovered/Not Resolved]
  - Myocardial infarction [Unknown]
  - Drug dose omission [Not Recovered/Not Resolved]
  - Cardiac disorder [Unknown]
  - Drug withdrawal syndrome [Not Recovered/Not Resolved]
  - Malaise [Not Recovered/Not Resolved]

NARRATIVE: CASE EVENT DATE: 2015
